FAERS Safety Report 5812049-2 (Version None)
Quarter: 2008Q3

REPORT INFORMATION
  Report Type: 
  Country: None (occurrence: None)
  Receive Date: 20080716
  Receipt Date: 20080711
  Transmission Date: 20090109
  Serious: Yes (Life-Threatening)
  Sender: FDA-Public Use
  Company Number: PHHY2008NL13745

PATIENT

DRUGS (2)
  1. NEORAL [Suspect]
     Indication: PSORIASIS
     Dosage: 150 MG, BID
     Route: 048
     Dates: start: 20080501, end: 20080701
  2. LIPITOR [Concomitant]
     Dosage: 10 MG, QD
     Dates: start: 20070101, end: 20080702

REACTIONS (4)
  - ACUTE CORONARY SYNDROME [None]
  - ARTERIOGRAM CORONARY [None]
  - ELECTROCARDIOGRAM ST SEGMENT ELEVATION [None]
  - PERCUTANEOUS CORONARY INTERVENTION [None]
